FAERS Safety Report 11243172 (Version 1)
Quarter: 2015Q3

REPORT INFORMATION
  Report Type: Spontaneous
  Country: US (occurrence: None)
  Receive Date: 20150702
  Receipt Date: 20150702
  Transmission Date: 20151125
  Serious: Yes (Disabling)
  Sender: FDA-Public Use
  Company Number: None

PATIENT
  Age: 48 Year
  Sex: Female
  Weight: 61.24 kg

DRUGS (13)
  1. DIAZAPAM [Concomitant]
  2. PHENERGAN [Concomitant]
     Active Substance: PROMETHAZINE HYDROCHLORIDE
  3. PRO OMEGA [Concomitant]
  4. TRIAMCINOLONE ACETATE NEW ENGLAND COMPOUNDING PHARMACY [Suspect]
     Active Substance: TRIAMCINOLONE ACETONIDE
     Indication: PERIPHERAL SWELLING
     Dates: start: 20120521, end: 20121005
  5. LYRICA [Concomitant]
     Active Substance: PREGABALIN
  6. CALRATE 600 PLUS D3 [Concomitant]
  7. MAGNESIUM [Concomitant]
     Active Substance: MAGNESIUM
  8. TRIAMCINOLONE ACETATE NEW ENGLAND COMPOUNDING PHARMACY [Suspect]
     Active Substance: TRIAMCINOLONE ACETONIDE
     Indication: JOINT SWELLING
     Dates: start: 20120521, end: 20121005
  9. MELATONIN [Concomitant]
     Active Substance: MELATONIN
  10. CEROFOLIN [Concomitant]
  11. PREDNISONE. [Concomitant]
     Active Substance: PREDNISONE
  12. BUTTERBUR [Concomitant]
  13. KETOROLAC [Concomitant]
     Active Substance: KETOROLAC\KETOROLAC TROMETHAMINE

REACTIONS (4)
  - Swelling [None]
  - Pain [None]
  - Muscle atrophy [None]
  - Sensory loss [None]
